FAERS Safety Report 10889468 (Version 3)
Quarter: 2015Q1

REPORT INFORMATION
  Report Type: Report from Study
  Country: US (occurrence: US)
  Receive Date: 20150305
  Receipt Date: 20150320
  Transmission Date: 20150721
  Serious: Yes (Hospitalization, Other)
  Sender: FDA-Public Use
  Company Number: US-ACTELION-A-US2015-113787

PATIENT
  Age: 53 Year
  Sex: Male

DRUGS (1)
  1. VELETRI [Suspect]
     Active Substance: EPOPROSTENOL
     Indication: PULMONARY HYPERTENSION
     Dosage: 7 NG/KG, PER MIN
     Route: 042
     Dates: start: 20150220

REACTIONS (30)
  - Butterfly rash [Unknown]
  - Hypotension [Unknown]
  - Hypoxia [Unknown]
  - Fall [Unknown]
  - Photophobia [Unknown]
  - Back injury [Unknown]
  - Oedema peripheral [Recovering/Resolving]
  - Dyspnoea [Recovering/Resolving]
  - Fatigue [Unknown]
  - Medication error [Unknown]
  - Shock [Unknown]
  - Pain in jaw [Unknown]
  - Flushing [Unknown]
  - Device malfunction [Recovered/Resolved]
  - Headache [Unknown]
  - Heart rate increased [Unknown]
  - Throat irritation [Unknown]
  - Local swelling [Unknown]
  - Cardiac ablation [Unknown]
  - Pneumonia [Unknown]
  - Arrhythmia [Unknown]
  - Pulmonary arterial hypertension [Unknown]
  - Feeling abnormal [Unknown]
  - Head injury [Unknown]
  - Erythema [Unknown]
  - Swelling face [Unknown]
  - Systemic lupus erythematosus [Unknown]
  - Dizziness [Unknown]
  - Joint swelling [Unknown]
  - Chest discomfort [Unknown]

NARRATIVE: CASE EVENT DATE: 20150222
